FAERS Safety Report 18353612 (Version 1)
Quarter: 2020Q4

REPORT INFORMATION
  Report Type: Spontaneous
  Country: US (occurrence: US)
  Receive Date: 20201006
  Receipt Date: 20201006
  Transmission Date: 20210114
  Serious: No
  Sender: FDA-Public Use
  Company Number: US-ROCHE-2433942

PATIENT
  Age: 53 Year
  Sex: Male
  Weight: 59.02 kg

DRUGS (1)
  1. ZELBORAF [Suspect]
     Active Substance: VEMURAFENIB
     Indication: MALIGNANT MELANOMA
     Route: 065
     Dates: start: 201907

REACTIONS (4)
  - Rash [Unknown]
  - Skin discolouration [Not Recovered/Not Resolved]
  - Infection [Recovered/Resolved]
  - Skin papilloma [Unknown]

NARRATIVE: CASE EVENT DATE: 201907
